FAERS Safety Report 11867550 (Version 2)
Quarter: 2016Q1

REPORT INFORMATION
  Report Type: Spontaneous
  Country: JP (occurrence: JP)
  Receive Date: 20151224
  Receipt Date: 20160118
  Transmission Date: 20160526
  Serious: Yes (Hospitalization, Other)
  Sender: FDA-Public Use
  Company Number: JP-SA-2015SA215750

PATIENT
  Age: 70 Year
  Sex: Male
  Weight: 59.3 kg

DRUGS (9)
  1. PRAVASTATIN SODIUM. [Suspect]
     Active Substance: PRAVASTATIN SODIUM
     Route: 048
  2. RABEPRAZOLE SODIUM. [Suspect]
     Active Substance: RABEPRAZOLE SODIUM
     Route: 048
  3. VARENICLINE [Suspect]
     Active Substance: VARENICLINE
     Route: 048
  4. ASPIRIN. [Concomitant]
     Active Substance: ASPIRIN
     Route: 048
  5. ISOSORBIDE MONONITRATE. [Concomitant]
     Active Substance: ISOSORBIDE MONONITRATE
     Route: 048
  6. AZILSARTAN [Concomitant]
     Active Substance: AZILSARTAN KAMEDOXOMIL
     Route: 048
  7. CLOPIDOGREL BISULFATE. [Suspect]
     Active Substance: CLOPIDOGREL BISULFATE
     Indication: ANTIPLATELET THERAPY
     Route: 048
  8. CILOSTAZOL. [Suspect]
     Active Substance: CILOSTAZOL
     Indication: ANTIPLATELET THERAPY
     Route: 048
  9. PRASUGREL [Concomitant]
     Active Substance: PRASUGREL
     Route: 048

REACTIONS (8)
  - Septic shock [Unknown]
  - Vomiting [Unknown]
  - Chills [Unknown]
  - Epiglottitis [Unknown]
  - Pyrexia [Unknown]
  - Lymphocyte percentage increased [Unknown]
  - Agranulocytosis [Unknown]
  - Neutropenia [Unknown]
